FAERS Safety Report 9507749 (Version 1)
Quarter: 2013Q3

REPORT INFORMATION
  Report Type: Spontaneous
  Country: FR (occurrence: FR)
  Receive Date: 20130909
  Receipt Date: 20130909
  Transmission Date: 20140515
  Serious: Yes (Hospitalization, Other)
  Sender: FDA-Public Use
  Company Number: FR-MERCK-1308FRA014987

PATIENT
  Age: 41 Year
  Sex: Female

DRUGS (1)
  1. MERCILON [Suspect]
     Indication: CONTRACEPTION
     Dosage: UNK
     Route: 048
     Dates: end: 20120105

REACTIONS (4)
  - Paraesthesia [Recovered/Resolved with Sequelae]
  - Hemiparesis [Recovered/Resolved]
  - Ischaemic stroke [Recovered/Resolved with Sequelae]
  - Headache [Recovered/Resolved]
